FAERS Safety Report 9917930 (Version 1)
Quarter: 2014Q1

REPORT INFORMATION
  Report Type: Spontaneous
  Country: US (occurrence: US)
  Receive Date: 20140222
  Receipt Date: 20140222
  Transmission Date: 20141002
  Serious: Yes (Hospitalization)
  Sender: FDA-Public Use
  Company Number: US-ROCHE-1349790

PATIENT
  Age: 75 Year
  Sex: Male

DRUGS (2)
  1. XELODA [Suspect]
     Indication: OESOPHAGEAL CARCINOMA
     Route: 065
  2. XELODA [Suspect]
     Indication: METASTASES TO LIVER

REACTIONS (2)
  - Foreign body [Recovered/Resolved]
  - Oesophageal spasm [Unknown]
